FAERS Safety Report 15187165 (Version 1)
Quarter: 2018Q3

REPORT INFORMATION
  Report Type: Report from Study
  Country: US (occurrence: US)
  Receive Date: 20180723
  Receipt Date: 20180723
  Transmission Date: 20181010
  Serious: No
  Sender: FDA-Public Use
  Company Number: US-EXELIXIS-CABO-18013758

PATIENT
  Sex: Male

DRUGS (2)
  1. CABOMETYX [Suspect]
     Active Substance: CABOZANTINIB S-MALATE
     Indication: THYROID CANCER
     Dosage: 40 MG, QD
     Route: 048
  2. NOXAFIL [Concomitant]
     Active Substance: POSACONAZOLE
     Dosage: UNK

REACTIONS (1)
  - Drug ineffective for unapproved indication [Unknown]
